FAERS Safety Report 5896367-8 (Version None)
Quarter: 2008Q3

REPORT INFORMATION
  Report Type: 
  Country: None (occurrence: None)
  Receive Date: 20080924
  Receipt Date: 20071214
  Transmission Date: 20090109
  Serious: Yes (Other)
  Sender: FDA-Public Use
  Company Number: US-ASTRAZENECA-2007UW23208

PATIENT
  Age: 25628 Day
  Sex: Male

DRUGS (4)
  1. SEROQUEL [Suspect]
     Indication: AGITATION
     Route: 048
  2. TRILEPTAL [Concomitant]
     Indication: CONVULSION
     Route: 048
  3. ZOCOR [Concomitant]
     Indication: HIGH DENSITY LIPOPROTEIN INCREASED
     Route: 048
  4. ALTACE [Concomitant]
     Indication: HYPERTENSION
     Route: 048

REACTIONS (1)
  - CONVULSION [None]
